FAERS Safety Report 8474849-2 (Version None)
Quarter: 2012Q2

REPORT INFORMATION
  Report Type: 
  Country: None (occurrence: None)
  Receive Date: 20120628
  Receipt Date: 20120618
  Transmission Date: 20120825
  Serious: Yes (Hospitalization)
  Sender: FDA-Public Use
  Company Number: US-BRISTOL-MYERS SQUIBB COMPANY-16481921

PATIENT
  Age: 64 Year
  Sex: Female

DRUGS (3)
  1. ORENCIA [Suspect]
     Indication: RHEUMATOID ARTHRITIS
     Dosage: LAST INFUSION ON 26MAR12,18MAY12,AT LEAST 3 MONTHS
     Route: 042
     Dates: start: 20120326
  2. METHOTREXATE [Suspect]
     Dosage: INCD 0.9 TO 0.6
  3. FOLIC ACID [Concomitant]

REACTIONS (13)
  - BLOOD FOLATE DECREASED [None]
  - ASTHENIA [None]
  - PYREXIA [None]
  - SHOULDER ARTHROPLASTY [None]
  - MALAISE [None]
  - FULL BLOOD COUNT DECREASED [None]
  - DRY SKIN [None]
  - HEADACHE [None]
  - NECK SURGERY [None]
  - INFLUENZA LIKE ILLNESS [None]
  - ARTHRALGIA [None]
  - DYSPNOEA [None]
  - BONE PAIN [None]
